FAERS Safety Report 10256618 (Version 1)
Quarter: 2014Q2

REPORT INFORMATION
  Report Type: Report from Study
  Country: US (occurrence: US)
  Receive Date: 20140624
  Receipt Date: 20140624
  Transmission Date: 20141212
  Serious: Yes (Hospitalization)
  Sender: FDA-Public Use
  Company Number: US-GILEAD-2014-0106306

PATIENT
  Sex: Female

DRUGS (2)
  1. RANOLAZINE [Suspect]
     Indication: ANGINA PECTORIS
     Dosage: 1000 MG, UNK
     Route: 065
  2. RANOLAZINE [Suspect]
     Dosage: 500 MG, UNK
     Route: 065

REACTIONS (3)
  - Insomnia [Unknown]
  - Productive cough [Unknown]
  - Pharyngeal oedema [Unknown]
